FAERS Safety Report 14085642 (Version 1)
Quarter: 2017Q4

REPORT INFORMATION
  Report Type: Report from Study
  Country: US (occurrence: US)
  Receive Date: 20171013
  Receipt Date: 20171013
  Transmission Date: 20180321
  Serious: Yes (Death, Other)
  Sender: FDA-Public Use
  Company Number: US-BRISTOL-MYERS SQUIBB COMPANY-BMS-2017-091227

PATIENT
  Age: 86 Year
  Sex: Female

DRUGS (3)
  1. NIVOLUMAB [Suspect]
     Active Substance: NIVOLUMAB
     Indication: MALIGNANT MELANOMA
     Dosage: 328 MG, UNK
     Route: 065
     Dates: start: 20170706, end: 20170907
  2. IPILIMUMAB [Suspect]
     Active Substance: IPILIMUMAB
     Indication: MALIGNANT MELANOMA
     Dosage: 742 MG, UNK
     Route: 042
     Dates: start: 20170706, end: 20170907
  3. GM-CSF [Suspect]
     Active Substance: GRANULOCYTE-MACROPHAGE COLONY-STIMULATING FACTOR
     Indication: MALIGNANT MELANOMA
     Dosage: 12750 ?G, UNK
     Route: 058
     Dates: start: 20170706, end: 20170915

REACTIONS (1)
  - Death [Fatal]

NARRATIVE: CASE EVENT DATE: 20171007
